FAERS Safety Report 21918892 (Version 1)
Quarter: 2023Q1

REPORT INFORMATION
  Report Type: Spontaneous
  Country: US (occurrence: US)
  Receive Date: 20230127
  Receipt Date: 20230127
  Transmission Date: 20230417
  Serious: No
  Sender: FDA-Public Use
  Company Number: US-SANOFI-01458224

PATIENT
  Age: 84 Year
  Sex: Female

DRUGS (2)
  1. LANTUS SOLOSTAR [Suspect]
     Active Substance: INSULIN GLARGINE
     Indication: Diabetes mellitus
     Dosage: 25 UNITS QD AND DRUG TREATMENT DURATION:2-3 YEARS
  2. GLIPIZIDE [Suspect]
     Active Substance: GLIPIZIDE

REACTIONS (2)
  - Contraindicated product administered [Unknown]
  - Product storage error [Unknown]
